FAERS Safety Report 9759900 (Version 3)
Quarter: 2017Q4

REPORT INFORMATION
  Report Type: Spontaneous
  Country: IE (occurrence: IE)
  Receive Date: 20131216
  Receipt Date: 20171208
  Transmission Date: 20180321
  Serious: Yes (Hospitalization)
  Sender: FDA-Public Use
  Company Number: IE-JNJFOC-20131207230

PATIENT
  Age: 89 Year
  Sex: Female

DRUGS (2)
  1. XARELTO [Suspect]
     Active Substance: RIVAROXABAN
     Indication: CEREBROVASCULAR ACCIDENT PROPHYLAXIS
     Route: 048
  2. XARELTO [Suspect]
     Active Substance: RIVAROXABAN
     Indication: ATRIAL FIBRILLATION
     Route: 048

REACTIONS (8)
  - Platelet count decreased [Unknown]
  - Anaemia [Unknown]
  - Mean cell volume abnormal [Unknown]
  - Gastrointestinal haemorrhage [Unknown]
  - Duodenitis [Unknown]
  - Hiatus hernia [Unknown]
  - Renal impairment [Unknown]
  - Red blood cell sedimentation rate abnormal [Unknown]
